FAERS Safety Report 10993509 (Version 3)
Quarter: 2016Q2

REPORT INFORMATION
  Report Type: Spontaneous
  Country: JP (occurrence: JP)
  Receive Date: 20150407
  Receipt Date: 20160630
  Transmission Date: 20160815
  Serious: Yes (Other)
  Sender: FDA-Public Use
  Company Number: JP-009507513-1504JPN002543

PATIENT
  Age: 42 Year
  Sex: Male

DRUGS (16)
  1. REFLEX [Suspect]
     Active Substance: MIRTAZAPINE
     Dosage: 45 MG, DAILY
     Route: 048
     Dates: start: 20140919, end: 20150122
  2. ZYPREXA [Suspect]
     Active Substance: OLANZAPINE
     Indication: DEPRESSION
     Dosage: 2.5 MG, QD
     Route: 048
     Dates: start: 20140627, end: 20150122
  3. CLONAZEPAM. [Concomitant]
     Active Substance: CLONAZEPAM
     Dosage: 1 MG, QD
     Route: 048
     Dates: start: 20151127
  4. REFLEX [Suspect]
     Active Substance: MIRTAZAPINE
     Dosage: 15 MG, DAILY
     Route: 048
     Dates: start: 20150130, end: 20150203
  5. CLONAZEPAM. [Concomitant]
     Active Substance: CLONAZEPAM
     Dosage: 1.5 MG, QD
     Route: 048
     Dates: start: 20151002, end: 20151126
  6. REFLEX [Suspect]
     Active Substance: MIRTAZAPINE
     Indication: DEPRESSION
     Dosage: 15 MG, DAILY
     Route: 048
     Dates: start: 20130830, end: 20130912
  7. REFLEX [Suspect]
     Active Substance: MIRTAZAPINE
     Dosage: 30 MG, QD
     Route: 048
     Dates: start: 20130913, end: 20140918
  8. TRIMEBUTINE MALEATE [Concomitant]
     Active Substance: TRIMEBUTINE MALEATE
     Indication: CHRONIC GASTRITIS
     Dosage: 300 MG, QD
     Route: 048
     Dates: start: 20140530, end: 20150122
  9. TRIHEXYPHENIDYL HYDROCHLORIDE. [Concomitant]
     Active Substance: TRIHEXYPHENIDYL HYDROCHLORIDE
     Indication: DYSTONIA
     Dosage: 4 MG, QD
     Route: 048
     Dates: start: 20150320, end: 20150402
  10. CLONAZEPAM. [Concomitant]
     Active Substance: CLONAZEPAM
     Indication: DYSKINESIA
     Dosage: 2 MG, QD
     Route: 048
     Dates: start: 20150123, end: 20151001
  11. DIAZEPAM. [Concomitant]
     Active Substance: DIAZEPAM
     Dosage: 2 MG, QD
     Route: 048
     Dates: start: 20150925, end: 20160121
  12. TRIHEXYPHENIDYL HYDROCHLORIDE. [Concomitant]
     Active Substance: TRIHEXYPHENIDYL HYDROCHLORIDE
     Dosage: 6 MG, QD
     Route: 048
     Dates: start: 20150403
  13. REFLEX [Suspect]
     Active Substance: MIRTAZAPINE
     Dosage: 30 MG, DAILY
     Route: 048
     Dates: start: 20150123, end: 20150129
  14. AMANTADINE HYDROCHLORIDE. [Concomitant]
     Active Substance: AMANTADINE HYDROCHLORIDE
     Indication: DYSTONIA
     Dosage: 100 MG, QD
     Route: 048
     Dates: start: 20150522
  15. DIAZEPAM. [Concomitant]
     Active Substance: DIAZEPAM
     Indication: DYSKINESIA
     Dosage: 8 MG, QD
     Route: 048
     Dates: start: 20150130, end: 20150811
  16. DIAZEPAM. [Concomitant]
     Active Substance: DIAZEPAM
     Dosage: 4 MG, QD
     Route: 048
     Dates: start: 20150812, end: 20150924

REACTIONS (2)
  - Dystonia [Recovered/Resolved]
  - Tardive dyskinesia [Recovered/Resolved]

NARRATIVE: CASE EVENT DATE: 20150123
